FAERS Safety Report 13192832 (Version 2)
Quarter: 2017Q2

REPORT INFORMATION
  Report Type: Spontaneous
  Country: US (occurrence: US)
  Receive Date: 20170207
  Receipt Date: 20170419
  Transmission Date: 20170830
  Serious: No
  Sender: FDA-Public Use
  Company Number: US-BAYER-2017-021033

PATIENT
  Sex: Male

DRUGS (1)
  1. ALEVE [Suspect]
     Active Substance: NAPROXEN SODIUM
     Indication: PAIN
     Dosage: 1 DF, ONCE
     Route: 048

REACTIONS (11)
  - Lip swelling [Unknown]
  - Gingival swelling [Unknown]
  - Hypersensitivity [Unknown]
  - Hypertension [Unknown]
  - Lip pain [Unknown]
  - Gingival pain [Unknown]
  - Muscle swelling [Unknown]
  - Skin irritation [Unknown]
  - Stomatitis [Unknown]
  - Drug hypersensitivity [Unknown]
  - Pain of skin [Unknown]
